FAERS Safety Report 6883688-5 (Version None)
Quarter: 2010Q3

REPORT INFORMATION
  Report Type: 
  Country: None (occurrence: None)
  Receive Date: 20100729
  Receipt Date: 20100716
  Transmission Date: 20110219
  Serious: Yes (Death, Hospitalization)
  Sender: FDA-Public Use
  Company Number: A0867502A

PATIENT
  Age: 75 Year
  Sex: Female
  Weight: 85.5 kg

DRUGS (1)
  1. AVANDIA [Suspect]
     Dates: start: 20020101

REACTIONS (4)
  - DEPRESSION [None]
  - MYOCARDIAL INFARCTION [None]
  - NERVOUSNESS [None]
  - NON-HODGKIN'S LYMPHOMA [None]
